FAERS Safety Report 23840900 (Version 1)
Quarter: 2024Q2

REPORT INFORMATION
  Report Type: Spontaneous
  Country: FR (occurrence: None)
  Receive Date: 20240510
  Receipt Date: 20240510
  Transmission Date: 20240715
  Serious: Yes (Hospitalization)
  Sender: FDA-Public Use
  Company Number: None

PATIENT
  Age: 70 Year
  Sex: Male
  Weight: 56 kg

DRUGS (15)
  1. STALEVO [Suspect]
     Active Substance: CARBIDOPA\ENTACAPONE\LEVODOPA
     Indication: Parkinson^s disease
     Dosage: STRENGTH: 175 MG/43.75 MG/200 MG: LCE
     Dates: start: 202201, end: 20240131
  2. BENSERAZIDE HYDROCHLORIDE\LEVODOPA [Suspect]
     Active Substance: BENSERAZIDE HYDROCHLORIDE\LEVODOPA
     Indication: Parkinson^s disease
     Dosage: STRENGTH: 125 100 MG/25 MG
     Dates: start: 201701
  3. BENSERAZIDE HYDROCHLORIDE\LEVODOPA [Suspect]
     Active Substance: BENSERAZIDE HYDROCHLORIDE\LEVODOPA
     Dates: start: 201701, end: 20240131
  4. BENSERAZIDE HYDROCHLORIDE\LEVODOPA [Suspect]
     Active Substance: BENSERAZIDE HYDROCHLORIDE\LEVODOPA
     Dates: start: 20240131
  5. QUETIAPINE [Suspect]
     Active Substance: QUETIAPINE
     Indication: Depression
     Dates: start: 20240130, end: 20240207
  6. QUETIAPINE [Suspect]
     Active Substance: QUETIAPINE
     Dates: start: 20240207
  7. MIRTAZAPINE [Suspect]
     Active Substance: MIRTAZAPINE
     Indication: Depression
     Dosage: STRENGTH: 15 MG
     Dates: start: 20240115, end: 20240130
  8. MIRTAZAPINE [Suspect]
     Active Substance: MIRTAZAPINE
     Dosage: STRENGTH: 15 MG
     Dates: start: 20240130
  9. LORAZEPAM [Suspect]
     Active Substance: LORAZEPAM
     Indication: Anxiety
     Dosage: STRENGTH: 1 MG
     Dates: start: 20240127, end: 20240130
  10. LORAZEPAM [Suspect]
     Active Substance: LORAZEPAM
     Dates: start: 20240130, end: 20240206
  11. LORAZEPAM [Suspect]
     Active Substance: LORAZEPAM
     Dates: start: 20240206, end: 20240208
  12. LORAZEPAM [Suspect]
     Active Substance: LORAZEPAM
     Dates: start: 20240208, end: 20240211
  13. LORAZEPAM [Suspect]
     Active Substance: LORAZEPAM
     Dates: start: 20240211
  14. RAMIPRIL [Concomitant]
     Active Substance: RAMIPRIL
  15. EZETIMIBE\SIMVASTATIN [Concomitant]
     Active Substance: EZETIMIBE\SIMVASTATIN
     Dosage: STRENGTH: 10 MG/40 MG, COMPRESSED

REACTIONS (2)
  - Aggression [Recovered/Resolved]
  - Confusional state [Recovered/Resolved]

NARRATIVE: CASE EVENT DATE: 20240128
